FAERS Safety Report 20380962 (Version 1)
Quarter: 2022Q1

REPORT INFORMATION
  Report Type: Other
  Country: AU (occurrence: AU)
  Receive Date: 20220127
  Receipt Date: 20220127
  Transmission Date: 20220423
  Serious: Yes (Other)
  Sender: FDA-Public Use
  Company Number: None

PATIENT

DRUGS (6)
  1. VENLAFAXINE [Suspect]
     Active Substance: VENLAFAXINE HYDROCHLORIDE
     Indication: Product used for unknown indication
     Dosage: UNK
     Route: 065
  2. CLOZAPINE [Suspect]
     Active Substance: CLOZAPINE
     Indication: Product used for unknown indication
     Dosage: UNK
     Route: 065
  3. GEMFIBROZIL [Concomitant]
     Active Substance: GEMFIBROZIL
     Indication: Product used for unknown indication
  4. PROPRANOLOL [Concomitant]
     Active Substance: PROPRANOLOL HYDROCHLORIDE
     Indication: Product used for unknown indication
  5. DIAZEPAM [Concomitant]
     Active Substance: DIAZEPAM
     Indication: Product used for unknown indication
     Dosage: UNK
     Route: 065
  6. CLONAZEPAM [Concomitant]
     Active Substance: CLONAZEPAM
     Indication: Product used for unknown indication
     Dosage: UNK
     Route: 065

REACTIONS (15)
  - Cardiomyopathy [Unknown]
  - Electrocardiogram QT prolonged [Unknown]
  - Blood 25-hydroxycholecalciferol decreased [Unknown]
  - Blood alkaline phosphatase increased [None]
  - Blood bicarbonate decreased [Unknown]
  - Blood thyroid stimulating hormone increased [None]
  - Blood triglycerides increased [Unknown]
  - Cardiac disorder [Unknown]
  - Diastolic dysfunction [Unknown]
  - Drug level increased [Unknown]
  - High density lipoprotein decreased [Unknown]
  - Left ventricular dysfunction [Unknown]
  - Lymphocyte count increased [Unknown]
  - Mean platelet volume increased [Unknown]
  - Blood glucose increased [Unknown]
